FAERS Safety Report 7743187-5 (Version None)
Quarter: 2011Q3

REPORT INFORMATION
  Report Type: 
  Country: None (occurrence: None)
  Receive Date: 20110825
  Receipt Date: 20110817
  Transmission Date: 20111222
  Serious: Yes (Death)
  Sender: FDA-Public Use
  Company Number: DSA_47183_2011

PATIENT
  Sex: Female
  Weight: 48.5349 kg

DRUGS (19)
  1. LEXAPRO [Concomitant]
  2. ASPIRIN [Concomitant]
  3. XENAZINE [Suspect]
     Indication: HUNTINGTON'S DISEASE
     Dosage: SEE IMAGE
     Route: 048
     Dates: start: 20100901
  4. XENAZINE [Suspect]
     Indication: HUNTINGTON'S DISEASE
     Dosage: SEE IMAGE
     Route: 048
     Dates: start: 20110101
  5. XENAZINE [Suspect]
     Indication: HUNTINGTON'S DISEASE
     Dosage: SEE IMAGE
     Route: 048
     Dates: start: 20100401
  6. XENAZINE [Suspect]
     Indication: HUNTINGTON'S DISEASE
     Dosage: SEE IMAGE
     Route: 048
     Dates: start: 20100301
  7. XENAZINE [Suspect]
     Indication: HUNTINGTON'S DISEASE
     Dosage: SEE IMAGE
     Route: 048
     Dates: start: 20101202
  8. SERTRALINE HYDROCHLORIDE [Concomitant]
  9. MOVIPREP [Concomitant]
  10. METFORMIN HCL [Concomitant]
  11. FAMOTIDINE [Concomitant]
  12. GLIPIZIDE [Concomitant]
  13. PROTONIX [Concomitant]
  14. BETAMETHASONE W/CLOTRIMAZOLE [Concomitant]
  15. FERREX [Concomitant]
  16. HALDOL [Concomitant]
  17. EFFEXOR XR [Concomitant]
  18. MULTI-VITAMINS [Concomitant]
  19. LOTEMAX [Concomitant]

REACTIONS (17)
  - EXTRAPYRAMIDAL DISORDER [None]
  - ASTHENIA [None]
  - PARKINSONISM [None]
  - SPINAL CORD COMPRESSION [None]
  - BALLISMUS [None]
  - DECREASED APPETITE [None]
  - CONFUSIONAL STATE [None]
  - SPINAL COLUMN STENOSIS [None]
  - SOMNOLENCE [None]
  - BRUXISM [None]
  - DEPRESSION [None]
  - CEREBROVASCULAR ACCIDENT [None]
  - WEIGHT DECREASED [None]
  - STARING [None]
  - HYPERSOMNIA [None]
  - DYSKINESIA [None]
  - DYSPNOEA [None]
